FAERS Safety Report 8812512 (Version 1)
Quarter: 2012Q4

REPORT INFORMATION
  Report Type: 
  Country: US (occurrence: US)
  Receive Date: 20120927
  Receipt Date: 20120927
  Transmission Date: 20130627
  Serious: Yes (Other)
  Sender: FDA-Public Use
  Company Number: US-ROCHE-784274

PATIENT
  Age: 20 Year
  Sex: Male
  Weight: 64.47 kg

DRUGS (1)
  1. ACCUTANE [Suspect]
     Indication: ACNE
     Route: 065
     Dates: start: 2000, end: 2001

REACTIONS (3)
  - Colitis ulcerative [Recovering/Resolving]
  - Inflammatory bowel disease [Unknown]
  - Panic disorder [Unknown]
